FAERS Safety Report 9458434 (Version 1)
Quarter: 2013Q3

REPORT INFORMATION
  Report Type: Spontaneous
  Country: US (occurrence: None)
  Receive Date: 20130813
  Receipt Date: 20130813
  Transmission Date: 20140515
  Serious: Yes (Disabling, Other)
  Sender: FDA-Public Use
  Company Number: None

PATIENT
  Age: 50 Year
  Sex: Female
  Weight: 63.5 kg

DRUGS (1)
  1. ELESTRIN GEL [Suspect]
     Dosage: 1 PUMP (0.52 MG) PER DAY  ONCE DAILY  APPLIED TO A SURFACE, USUALLY THE SKIN
     Dates: start: 20130630, end: 20130706

REACTIONS (1)
  - Tinnitus [None]
